FAERS Safety Report 8019424-9 (Version None)
Quarter: 2012Q1

REPORT INFORMATION
  Report Type: 
  Country: None (occurrence: None)
  Receive Date: 20120103
  Receipt Date: 20111222
  Transmission Date: 20120608
  Serious: Yes (Other)
  Sender: FDA-Public Use
  Company Number: PHHY2011AU111952

PATIENT
  Sex: Female

DRUGS (1)
  1. FEMARA [Suspect]
     Indication: BREAST CANCER
     Dosage: UNK UKN, UNK
     Route: 048
     Dates: start: 20100101

REACTIONS (7)
  - HYPERHIDROSIS [None]
  - HEART RATE INCREASED [None]
  - FASCIITIS [None]
  - VULVOVAGINAL DRYNESS [None]
  - HOT FLUSH [None]
  - ARTHRITIS [None]
  - ALOPECIA [None]
